FAERS Safety Report 5583401-8 (Version None)
Quarter: 2008Q1

REPORT INFORMATION
  Report Type: 
  Country: None (occurrence: None)
  Receive Date: 20080107
  Receipt Date: 20071226
  Transmission Date: 20080703
  Serious: Yes (Other)
  Sender: FDA-Public Use
  Company Number: US-PFIZER INC-2007106423

PATIENT
  Sex: Female
  Weight: 65.909 kg

DRUGS (11)
  1. CHANTIX [Suspect]
     Indication: SMOKING CESSATION THERAPY
     Dates: start: 20071001, end: 20071218
  2. CEPHALEXIN [Suspect]
     Indication: MALAISE
  3. CEPHALEXIN [Suspect]
     Indication: SINUS DISORDER
  4. CEPHALEXIN [Suspect]
     Indication: NASOPHARYNGITIS
  5. DIAZEPAM [Concomitant]
  6. UBIDECARENONE [Concomitant]
  7. VITAMINS [Concomitant]
  8. FOSAMAX [Concomitant]
  9. CALTRATE + D [Concomitant]
  10. ALL OTHER THERAPEUTIC PRODUCTS [Concomitant]
  11. SODIUM CHLORIDE [Concomitant]
     Route: 045

REACTIONS (13)
  - ABNORMAL DREAMS [None]
  - AGEUSIA [None]
  - ANOSMIA [None]
  - APHONIA [None]
  - CONSTIPATION [None]
  - FEELING ABNORMAL [None]
  - MALAISE [None]
  - NASOPHARYNGITIS [None]
  - NAUSEA [None]
  - PHARYNGEAL HAEMORRHAGE [None]
  - PYREXIA [None]
  - SINUS DISORDER [None]
  - TINNITUS [None]
